FAERS Safety Report 23167235 (Version 6)
Quarter: 2024Q3

REPORT INFORMATION
  Report Type: Spontaneous
  Country: US (occurrence: US)
  Receive Date: 20231109
  Receipt Date: 20240910
  Transmission Date: 20241017
  Serious: Yes (Other)
  Sender: BRISTOL MYERS SQUIBB
  Company Number: US-BRISTOL-MYERS SQUIBB COMPANY-2023-160493

PATIENT
  Age: 63 Year
  Sex: Female

DRUGS (1)
  1. ORENCIA [Suspect]
     Active Substance: ABATACEPT
     Indication: Product used for unknown indication
     Route: 058

REACTIONS (7)
  - Nausea [Unknown]
  - Illness [Unknown]
  - Arthropathy [Unknown]
  - Stress [Unknown]
  - Hiatus hernia [Unknown]
  - Fall [Unknown]
  - Rotator cuff syndrome [Unknown]
